FAERS Safety Report 9448523 (Version 1)
Quarter: 2013Q3

REPORT INFORMATION
  Report Type: Spontaneous
  Country: US (occurrence: US)
  Receive Date: 20130808
  Receipt Date: 20130808
  Transmission Date: 20140515
  Serious: Yes (Death, Other)
  Sender: FDA-Public Use
  Company Number: US-ELI_LILLY_AND_COMPANY-US201308000163

PATIENT
  Age: 84 Year
  Sex: Male

DRUGS (2)
  1. HUMALOG LISPRO [Suspect]
     Indication: DIABETES MELLITUS
  2. OXYGEN [Concomitant]
     Dosage: UNK, UNKNOWN

REACTIONS (2)
  - Chronic obstructive pulmonary disease [Fatal]
  - Asthma [Unknown]
